FAERS Safety Report 25862587 (Version 1)
Quarter: 2025Q3

REPORT INFORMATION
  Report Type: Spontaneous
  Country: EU (occurrence: EU)
  Receive Date: 20250930
  Receipt Date: 20250930
  Transmission Date: 20251021
  Serious: Yes (Death)
  Sender: ACS DOBFAR
  Company Number: None

PATIENT
  Age: 70 Year
  Sex: Male
  Weight: 84 kg

DRUGS (17)
  1. MEROPENEM [Suspect]
     Active Substance: MEROPENEM
     Indication: Colitis
     Route: 042
     Dates: start: 20250803, end: 20250812
  2. AMIODARONE [Suspect]
     Active Substance: AMIODARONE
     Indication: Tachycardia
     Route: 042
     Dates: start: 20250729, end: 20250810
  3. PANTOPRAZOLE SODIUM [Suspect]
     Active Substance: PANTOPRAZOLE SODIUM
     Indication: Tachycardia
     Route: 042
     Dates: start: 20250624, end: 20250812
  4. ATOVAQUONE [Concomitant]
     Active Substance: ATOVAQUONE
  5. ACYCLOVIR [Concomitant]
     Active Substance: ACYCLOVIR
  6. METHYLPREDNISOLONE [Concomitant]
     Active Substance: METHYLPREDNISOLONE
  7. PHLOROGLUCINOL [Concomitant]
     Active Substance: PHLOROGLUCINOL
  8. AMPHOTERICIN B [Concomitant]
     Active Substance: AMPHOTERICIN B
  9. BISOPROLOL FUMARATE [Concomitant]
     Active Substance: BISOPROLOL FUMARATE
  10. FUROSEMIDE [Concomitant]
     Active Substance: FUROSEMIDE
  11. TRIMEBUTINE [Concomitant]
     Active Substance: TRIMEBUTINE
  12. NOREPINEPHRINE BITARTRATE [Concomitant]
     Active Substance: NOREPINEPHRINE BITARTRATE
  13. INSULIN ASPART [Concomitant]
     Active Substance: INSULIN ASPART
  14. MYCOPHENOLATE MOFETIL [Concomitant]
     Active Substance: MYCOPHENOLATE MOFETIL
  15. NEFOPAM HYDROCHLORIDE [Concomitant]
     Active Substance: NEFOPAM HYDROCHLORIDE
  16. URSODIOL [Concomitant]
     Active Substance: URSODIOL
  17. MORPHINE [Concomitant]
     Active Substance: MORPHINE

REACTIONS (1)
  - Toxic epidermal necrolysis [Fatal]

NARRATIVE: CASE EVENT DATE: 20250809
